FAERS Safety Report 5534475-1 (Version None)
Quarter: 2007Q4

REPORT INFORMATION
  Report Type: 
  Country: None (occurrence: None)
  Receive Date: 20071205
  Receipt Date: 20071128
  Transmission Date: 20080405
  Serious: Yes (Hospitalization)
  Sender: FDA-Public Use
  Company Number: FR-ASTRAZENECA-2007CG01604

PATIENT
  Age: 52 Year
  Sex: Female
  Weight: 60 kg

DRUGS (5)
  1. CRESTOR [Suspect]
     Indication: HYPERCHOLESTEROLAEMIA
     Route: 048
     Dates: start: 20070601
  2. LEVOTHYROX [Concomitant]
  3. ANAFRANIL [Concomitant]
     Indication: PAIN
  4. KARDEGIC [Concomitant]
     Indication: ARTERIAL DISORDER
  5. PLAVIX [Concomitant]

REACTIONS (3)
  - HAEMATURIA [None]
  - URINARY BLADDER POLYP [None]
  - URINARY TRACT INFECTION [None]
